FAERS Safety Report 7322525-1 (Version None)
Quarter: 2011Q1

REPORT INFORMATION
  Report Type: 
  Country: None (occurrence: None)
  Receive Date: 20110301
  Receipt Date: 20110124
  Transmission Date: 20110831
  Serious: No
  Sender: FDA-Public Use
  Company Number: US-BAYER-2011-009255

PATIENT
  Sex: Female

DRUGS (1)
  1. MIRENA [Suspect]
     Dosage: 20 MCG/24HR, CONT
     Route: 015

REACTIONS (5)
  - BACK PAIN [None]
  - INFLUENZA LIKE ILLNESS [None]
  - FEELING ABNORMAL [None]
  - ABDOMINAL DISCOMFORT [None]
  - NAUSEA [None]
